FAERS Safety Report 20223725 (Version 1)
Quarter: 2021Q4

REPORT INFORMATION
  Report Type: Report from Study
  Country: GR (occurrence: GR)
  Receive Date: 20211223
  Receipt Date: 20211223
  Transmission Date: 20220303
  Serious: Yes (Other)
  Sender: FDA-Public Use
  Company Number: GR-LEO Pharma-340302

PATIENT
  Age: 71 Year
  Sex: Male
  Weight: 110 kg

DRUGS (4)
  1. BRODALUMAB [Suspect]
     Active Substance: BRODALUMAB
     Indication: Psoriasis
     Dosage: 210MG IN WEEKS 0,1,2 AND THEN BI-WEEKLY (210 MG)
     Route: 065
     Dates: start: 20191129, end: 20210122
  2. DARXA [Concomitant]
     Indication: Cardiovascular event prophylaxis
     Route: 048
     Dates: start: 20191111
  3. IRBEPRESS PLUS [Concomitant]
     Indication: Hypertension
     Dosage: 150/2,5MG, ORAL, ONCE A DAY.
     Route: 048
     Dates: start: 20190626
  4. EZETIMIBE\SIMVASTATIN [Concomitant]
     Active Substance: EZETIMIBE\SIMVASTATIN
     Indication: Hyperlipidaemia
     Dosage: 10 + 20MG, ORAL, ONCE A DAY.
     Route: 048
     Dates: start: 20190701

REACTIONS (1)
  - Psoriatic arthropathy [Recovering/Resolving]

NARRATIVE: CASE EVENT DATE: 20210208
